FAERS Safety Report 8767276 (Version 3)
Quarter: 2012Q4

REPORT INFORMATION
  Report Type: 
  Country: JP (occurrence: JP)
  Receive Date: 20120904
  Receipt Date: 20121009
  Transmission Date: 20130627
  Serious: No
  Sender: FDA-Public Use
  Company Number: JP-GLAXOSMITHKLINE-B0826814A

PATIENT
  Age: 79 Year
  Sex: Male

DRUGS (2)
  1. AVOLVE [Suspect]
     Indication: LOWER URINARY TRACT SYMPTOMS
     Dosage: .5MG Per day
     Route: 048
     Dates: start: 20100913
  2. URIEF [Concomitant]
     Indication: LOWER URINARY TRACT SYMPTOMS
     Dosage: 4MG Twice per day
     Route: 048
     Dates: start: 20100913

REACTIONS (2)
  - Anaemia [Not Recovered/Not Resolved]
  - Prostatic specific antigen increased [Unknown]
